FAERS Safety Report 5270205-9 (Version None)
Quarter: 2007Q1

REPORT INFORMATION
  Report Type: 
  Country: None (occurrence: None)
  Receive Date: 20070320
  Receipt Date: 20070308
  Transmission Date: 20070707
  Serious: Yes (Hospitalization)
  Sender: FDA-Public Use
  Company Number: BG-SHR-BG-2006-038471

PATIENT
  Age: 62 Year
  Sex: Female

DRUGS (6)
  1. CAMPATH [Suspect]
     Dosage: 30 MG, 3X/WEEK
     Route: 042
     Dates: start: 20060516, end: 20061013
  2. CAMPATH [Suspect]
     Dosage: 10 MG, 1 DOSE
     Route: 042
     Dates: start: 20060509, end: 20060509
  3. CAMPATH [Suspect]
     Dosage: 30 MG, 1 DOSE
     Route: 042
     Dates: start: 20060510, end: 20060510
  4. CAMPATH [Suspect]
     Dosage: 3 MG, 1 DOSE
     Route: 042
     Dates: start: 20060508, end: 20060508
  5. FLUDARABINE PHOSPHATE [Suspect]
     Dosage: UNK, UNK
     Route: 042
     Dates: start: 20060516, end: 20061013
  6. ACYCLOVIR [Concomitant]
     Indication: PROPHYLAXIS
     Route: 048
     Dates: start: 20060516, end: 20061122

REACTIONS (1)
  - HEPATITIS CHOLESTATIC [None]
